FAERS Safety Report 5333208-1 (Version None)
Quarter: 2007Q2

REPORT INFORMATION
  Report Type: 
  Country: None (occurrence: None)
  Receive Date: 20070524
  Receipt Date: 20070511
  Transmission Date: 20071010
  Serious: Yes (Hospitalization, Other)
  Sender: FDA-Public Use
  Company Number: PHBS2007JP03817

PATIENT
  Age: 55 Year
  Sex: Male

DRUGS (3)
  1. GLEEVEC [Suspect]
     Indication: CHRONIC MYELOID LEUKAEMIA
     Dosage: 300 MG/D
     Route: 048
     Dates: start: 20040425, end: 20070301
  2. GLEEVEC [Suspect]
     Dosage: 300 MG/D
     Route: 048
     Dates: start: 20070319
  3. ALLEGRA [Concomitant]
     Indication: URTICARIA
     Dosage: 60 MG/D
     Route: 048
     Dates: start: 20040508

REACTIONS (7)
  - ABDOMINAL PAIN [None]
  - BLOOD LACTATE DEHYDROGENASE INCREASED [None]
  - HAEMORRHAGIC DIATHESIS [None]
  - RENAL CELL CARCINOMA STAGE UNSPECIFIED [None]
  - RENAL TUMOUR EXCISION [None]
  - THROMBOCYTOPENIA [None]
  - WHITE BLOOD CELL COUNT DECREASED [None]
